FAERS Safety Report 20729969 (Version 1)
Quarter: 2022Q2

REPORT INFORMATION
  Report Type: Spontaneous
  Country: US (occurrence: US)
  Receive Date: 20220420
  Receipt Date: 20220420
  Transmission Date: 20220721
  Serious: Yes (Life-Threatening, Hospitalization, Other)
  Sender: FDA-Public Use
  Company Number: US-TEVA-2021-US-1989816

PATIENT
  Age: 15 Year
  Sex: Male

DRUGS (4)
  1. CISPLATIN [Suspect]
     Active Substance: CISPLATIN
     Indication: Osteosarcoma
     Dosage: DAYS 1-2, WEEK 1
  2. METHOTREXATE [Suspect]
     Active Substance: METHOTREXATE
     Indication: Osteosarcoma
     Dosage: HIGH-DOSE (WEEK 4, WEEK 5), 48GM/M2?DOSE: 48GM/M2, CUMULATIVE DOSE: 48GM/M2
  3. DOXORUBICIN [Suspect]
     Active Substance: DOXORUBICIN
     Indication: Osteosarcoma
     Dosage: DAYS 1-2, WEEK 1
  4. DEXRAZOXANE HYDROCHLORIDE [Concomitant]
     Active Substance: DEXRAZOXANE HYDROCHLORIDE
     Indication: Cardiovascular event prophylaxis
     Dosage: DAYS 1-2

REACTIONS (3)
  - Nephropathy toxic [Recovered/Resolved]
  - Cardiotoxicity [Recovered/Resolved]
  - Off label use [Unknown]
